FAERS Safety Report 7568971-2 (Version None)
Quarter: 2011Q2

REPORT INFORMATION
  Report Type: 
  Country: None (occurrence: None)
  Receive Date: 20110623
  Receipt Date: 20110609
  Transmission Date: 20111010
  Serious: Yes (Hospitalization, Other)
  Sender: FDA-Public Use
  Company Number: US-NOVEN-11US002598

PATIENT
  Age: 57 Year
  Sex: Male

DRUGS (13)
  1. LITHIUM CARBONATE [Suspect]
     Indication: MANIA
     Dosage: 300 MG, QD
  2. PROMETHAZINE [Concomitant]
     Indication: PRODUCT USED FOR UNKNOWN INDICATION
  3. CHLORPROMAZINE [Concomitant]
     Indication: PRODUCT USED FOR UNKNOWN INDICATION
  4. VALPROATE SODIUM [Concomitant]
     Indication: PRODUCT USED FOR UNKNOWN INDICATION
  5. PIPERIDOLATE HYDROCHLORIDE [Concomitant]
     Indication: PRODUCT USED FOR UNKNOWN INDICATION
  6. LEVOMEPROMAZINE [Concomitant]
     Indication: PRODUCT USED FOR UNKNOWN INDICATION
  7. CARBAMAZEPINE [Concomitant]
     Indication: PRODUCT USED FOR UNKNOWN INDICATION
     Dosage: 300 MG, QD
  8. LITHIUM CARBONATE [Suspect]
     Dosage: 300 MG, QD
  9. HALOPERIDOL [Concomitant]
     Indication: PRODUCT USED FOR UNKNOWN INDICATION
  10. ZOTEPINE [Concomitant]
     Indication: PRODUCT USED FOR UNKNOWN INDICATION
  11. LITHIUM CARBONATE [Suspect]
     Dosage: 500 MG, QD
  12. NITRAZEPAM [Concomitant]
     Indication: PRODUCT USED FOR UNKNOWN INDICATION
  13. PHENOBARBITAL [Concomitant]
     Indication: PRODUCT USED FOR UNKNOWN INDICATION

REACTIONS (10)
  - CARDIO-RESPIRATORY ARREST [None]
  - LIVER DISORDER [None]
  - SINUS BRADYCARDIA [None]
  - VENTRICULAR FIBRILLATION [None]
  - RENAL IMPAIRMENT [None]
  - ADAMS-STOKES SYNDROME [None]
  - FATIGUE [None]
  - BIPOLAR I DISORDER [None]
  - DRUG LEVEL BELOW THERAPEUTIC [None]
  - ATRIOVENTRICULAR BLOCK COMPLETE [None]
